FAERS Safety Report 4329170-0 (Version None)
Quarter: 2004Q2

REPORT INFORMATION
  Report Type: 
  Country: None (occurrence: None)
  Receive Date: 20040401
  Receipt Date: 20040322
  Transmission Date: 20050107
  Serious: Yes (Hospitalization)
  Sender: FDA-Public Use
  Company Number: 200411167FR

PATIENT
  Age: 78 Year
  Sex: Female
  Weight: 90 kg

DRUGS (6)
  1. RIFADIN [Suspect]
     Indication: SEPSIS
     Route: 042
     Dates: start: 20040115, end: 20040223
  2. DALACINE [Suspect]
     Indication: SEPSIS
     Route: 042
     Dates: start: 20040127, end: 20040223
  3. MOPRAL [Suspect]
     Indication: GASTROINTESTINAL HAEMORRHAGE
     Route: 042
     Dates: start: 20040211, end: 20040225
  4. MOPRAL [Suspect]
     Indication: STRESS ULCER
     Route: 042
     Dates: start: 20040211, end: 20040225
  5. CORDARONE [Concomitant]
     Indication: ATRIAL FIBRILLATION
     Dates: start: 20040125
  6. CALCIPARINE [Concomitant]
     Dates: start: 20040101, end: 20040101

REACTIONS (13)
  - ATRIAL FIBRILLATION [None]
  - COMA [None]
  - CONVULSION [None]
  - CSF TEST ABNORMAL [None]
  - ELECTROENCEPHALOGRAM ABNORMAL [None]
  - GASTRIC HAEMORRHAGE [None]
  - GASTROINTESTINAL HAEMORRHAGE [None]
  - IMPLANT SITE INFECTION [None]
  - MYOCLONUS [None]
  - SEPSIS [None]
  - STATUS EPILEPTICUS [None]
  - STRESS ULCER [None]
  - SYNCOPE [None]
